FAERS Safety Report 5634381-8 (Version None)
Quarter: 2008Q1

REPORT INFORMATION
  Report Type: 
  Country: None (occurrence: None)
  Receive Date: 20080222
  Receipt Date: 20080213
  Transmission Date: 20080703
  Serious: Yes (Other)
  Sender: FDA-Public Use
  Company Number: US-JNJFOC-20080203387

PATIENT
  Sex: Female
  Weight: 47.63 kg

DRUGS (5)
  1. FENTANYL TRANSDERMAL SYSTEM [Suspect]
     Indication: MIGRAINE
     Route: 062
  2. PREMARIN [Concomitant]
     Indication: HORMONE REPLACEMENT THERAPY
     Route: 048
  3. XANAX [Concomitant]
     Indication: ANXIETY
     Route: 048
  4. SOMA [Concomitant]
     Indication: BACK PAIN
     Route: 048
  5. HYOSCYAMINE [Concomitant]
     Indication: GASTROINTESTINAL PAIN
     Route: 048

REACTIONS (6)
  - FEELING ABNORMAL [None]
  - FEELING COLD [None]
  - FLUSHING [None]
  - HYPERHIDROSIS [None]
  - PALPITATIONS [None]
  - SOMNAMBULISM [None]
